FAERS Safety Report 7060408-5 (Version None)
Quarter: 2010Q4

REPORT INFORMATION
  Report Type: 
  Country: None (occurrence: None)
  Receive Date: 20101025
  Receipt Date: 20101021
  Transmission Date: 20110411
  Serious: Yes (Other)
  Sender: FDA-Public Use
  Company Number: HQWYE041928FEB06

PATIENT
  Sex: Female

DRUGS (6)
  1. PREMPRO [Suspect]
     Indication: HORMONE REPLACEMENT THERAPY
  2. PREFEST [Suspect]
  3. PROVERA [Suspect]
  4. ESTROGENS [Suspect]
  5. PREMARIN [Suspect]
  6. MEDROXYPROGESTERONE ACETATE [Suspect]

REACTIONS (5)
  - ARTHRITIS [None]
  - BREAST CANCER [None]
  - DEAFNESS [None]
  - LIVER DISORDER [None]
  - NEURALGIA [None]
